FAERS Safety Report 9376754 (Version 2)
Quarter: 2013Q3

REPORT INFORMATION
  Report Type: Spontaneous
  Country: US (occurrence: US)
  Receive Date: 20130701
  Receipt Date: 20130812
  Transmission Date: 20140515
  Serious: Yes (Hospitalization)
  Sender: FDA-Public Use
  Company Number: US-BIOGENIDEC-2013BI057303

PATIENT
  Age: 50 Year
  Sex: Female

DRUGS (4)
  1. TECFIDERA [Suspect]
     Indication: MULTIPLE SCLEROSIS
     Route: 048
     Dates: start: 20130614, end: 20130627
  2. LEVOTHYROXINE [Concomitant]
  3. CLONAZEPAM [Concomitant]
  4. ZOLOFT [Concomitant]

REACTIONS (4)
  - Dehydration [Recovered/Resolved]
  - Nausea [Recovered/Resolved]
  - Vomiting [Recovered/Resolved]
  - Pyrexia [Unknown]
